FAERS Safety Report 16083116 (Version 1)
Quarter: 2019Q1

REPORT INFORMATION
  Report Type: Spontaneous
  Country: GB (occurrence: GB)
  Receive Date: 20190318
  Receipt Date: 20190318
  Transmission Date: 20190418
  Serious: Yes (Hospitalization)
  Sender: FDA-Public Use
  Company Number: GB-ACCORD-113048

PATIENT
  Age: 77 Year

DRUGS (14)
  1. HYLO-FORTE [Concomitant]
     Active Substance: HYALURONATE SODIUM
     Dosage: ONE DROP INTO EACH EYE THREE TIMES A DAY, AS NECESSARY
  2. FOLIC ACID. [Concomitant]
     Active Substance: FOLIC ACID
     Dosage: ALTERNATE DAYS
  3. CALCIUM CARBONATE. [Concomitant]
     Active Substance: CALCIUM CARBONATE
  4. METHOTREXATE. [Suspect]
     Active Substance: METHOTREXATE
     Indication: PRODUCT USED FOR UNKNOWN INDICATION
  5. DOXAZOSIN [Concomitant]
     Active Substance: DOXAZOSIN\DOXAZOSIN MESYLATE
  6. COCODAMOL [Concomitant]
     Active Substance: ACETAMINOPHEN\CODEINE PHOSPHATE
     Dosage: 8 MG/ 500 MG ONE OR TWO FOUR TIMES DAILY AS NECESSARY
  7. GENTAMICIN. [Concomitant]
     Active Substance: GENTAMICIN
  8. OMEPRAZOLE. [Concomitant]
     Active Substance: OMEPRAZOLE
  9. CIPROFLOXACIN. [Concomitant]
     Active Substance: CIPROFLOXACIN
  10. ABATACEPT [Suspect]
     Active Substance: ABATACEPT
     Indication: PRODUCT USED FOR UNKNOWN INDICATION
     Dosage: 125 MG/1 ML SOLUTION FOR INJECTION PRE-FILLED DISPOSABLE DEVICES
  11. COLECALCIFEROL [Concomitant]
     Active Substance: CHOLECALCIFEROL
  12. NITROFURANTOIN/NITROFURANTOIN SODIUM [Concomitant]
     Dosage: FOR 7 DAYS
  13. CELECOXIB. [Concomitant]
     Active Substance: CELECOXIB
  14. BENDROFLUMETHIAZIDE [Concomitant]
     Active Substance: BENDROFLUMETHIAZIDE
     Dosage: EVERY MORNING

REACTIONS (4)
  - Kidney infection [Unknown]
  - Groin pain [Unknown]
  - Pyelonephritis [Unknown]
  - Urinary tract infection [Recovered/Resolved]

NARRATIVE: CASE EVENT DATE: 20180419
